FAERS Safety Report 5650776-0 (Version None)
Quarter: 2008Q1

REPORT INFORMATION
  Report Type: 
  Country: None (occurrence: None)
  Receive Date: 20080131
  Receipt Date: 20071216
  Transmission Date: 20080703
  Serious: No
  Sender: FDA-Public Use
  Company Number: US200712003372

PATIENT
  Age: 54 Year
  Sex: Male

DRUGS (3)
  1. BYETTA [Suspect]
     Indication: TYPE 2 DIABETES MELLITUS
     Dosage: 5 UG,2/D, SUBCUTANEOUS
     Route: 058
     Dates: start: 20071128
  2. EXENATIDE 5MCG PEN, DISPOSABLE DEVICE (EXENATIDE PEN (5 MCG))) PEN,DIS [Concomitant]
  3. VALIUM [Concomitant]

REACTIONS (1)
  - ANGER [None]
